FAERS Safety Report 14263301 (Version 1)
Quarter: 2017Q4

REPORT INFORMATION
  Report Type: Spontaneous
  Country: US (occurrence: US)
  Receive Date: 20171208
  Receipt Date: 20171208
  Transmission Date: 20180321
  Serious: Yes (Other)
  Sender: FDA-Public Use
  Company Number: US-JNJFOC-20171200496

PATIENT
  Sex: Female
  Weight: 76.66 kg

DRUGS (3)
  1. ELMIRON [Suspect]
     Active Substance: PENTOSAN POLYSULFATE SODIUM
     Indication: HYPERTONIC BLADDER
     Route: 048
     Dates: start: 1999
  2. BENADRYL [Concomitant]
     Active Substance: DIPHENHYDRAMINE HYDROCHLORIDE
     Route: 065
  3. GABAPENTIN. [Concomitant]
     Active Substance: GABAPENTIN
     Indication: MULTIPLE SCLEROSIS
     Route: 065
     Dates: start: 2004

REACTIONS (12)
  - Expired product administered [Unknown]
  - Suicidal ideation [Unknown]
  - Escherichia infection [Not Recovered/Not Resolved]
  - Urinary bladder rupture [Recovered/Resolved]
  - Cardiac arrest [Unknown]
  - Colitis [Not Recovered/Not Resolved]
  - Ear infection [Not Recovered/Not Resolved]
  - Upper respiratory tract infection [Unknown]
  - Depression [Unknown]
  - Tooth extraction [Unknown]
  - Multiple sclerosis [Not Recovered/Not Resolved]
  - Hysterectomy [Recovered/Resolved]

NARRATIVE: CASE EVENT DATE: 2002
